FAERS Safety Report 15322817 (Version 1)
Quarter: 2018Q3

REPORT INFORMATION
  Report Type: Spontaneous
  Country: FR (occurrence: FR)
  Receive Date: 20180827
  Receipt Date: 20180827
  Transmission Date: 20181010
  Serious: Yes (Life-Threatening, Hospitalization)
  Sender: FDA-Public Use
  Company Number: FR-TEVA-2018-FR-948106

PATIENT
  Age: 61 Year
  Sex: Female
  Weight: 56 kg

DRUGS (7)
  1. HERCEPTIN [Suspect]
     Active Substance: TRASTUZUMAB
     Indication: HER-2 POSITIVE BREAST CANCER
     Route: 042
     Dates: start: 20180606, end: 20180627
  2. VENTOLINE [Concomitant]
     Active Substance: ALBUTEROL
     Dosage: SI BESOIN
     Route: 055
  3. EPIRUBICINE [Suspect]
     Active Substance: EPIRUBICIN
     Indication: HER-2 POSITIVE BREAST CANCER
     Route: 042
     Dates: start: 201803, end: 201805
  4. CYCLOPHOSPHAMIDE. [Suspect]
     Active Substance: CYCLOPHOSPHAMIDE
     Indication: HER-2 POSITIVE BREAST CANCER
     Route: 042
     Dates: start: 201803, end: 201805
  5. ZOPICLONE [Concomitant]
     Active Substance: ZOPICLONE
     Dosage: .5 MILLIGRAM DAILY;
     Route: 048
  6. TAXOL [Suspect]
     Active Substance: PACLITAXEL
     Indication: HER-2 POSITIVE BREAST CANCER
     Route: 042
     Dates: start: 20180606, end: 20180712
  7. SEROPLEX 20 MG, COMPRIM? PELLICUL? S?CABLE [Concomitant]
     Active Substance: ESCITALOPRAM OXALATE
     Dosage: 1 DOSAGE FORMS DAILY;
     Route: 048

REACTIONS (7)
  - Pneumothorax [Recovering/Resolving]
  - Oedema peripheral [Recovering/Resolving]
  - Dyspnoea [Recovering/Resolving]
  - Cardiac failure [Not Recovered/Not Resolved]
  - Pleural effusion [Recovering/Resolving]
  - Respiratory distress [Recovering/Resolving]
  - Cardiogenic shock [Not Recovered/Not Resolved]

NARRATIVE: CASE EVENT DATE: 201806
